FAERS Safety Report 9088355 (Version 1)
Quarter: 2013Q1

REPORT INFORMATION
  Report Type: Spontaneous
  Country: FR (occurrence: FR)
  Receive Date: 20130201
  Receipt Date: 20130201
  Transmission Date: 20140127
  Serious: Yes (Hospitalization)
  Sender: FDA-Public Use
  Company Number: FR-B.I. PHARMACEUTICALS,INC./RIDGEFIELD-2013-FF-00283FF

PATIENT
  Age: 71 Year
  Sex: Female

DRUGS (2)
  1. SIFROL [Suspect]
     Indication: PARKINSON^S DISEASE
     Route: 048
     Dates: start: 20120712, end: 20120730
  2. SEROPLEX [Concomitant]

REACTIONS (2)
  - Confusional state [Not Recovered/Not Resolved]
  - Agitation [Not Recovered/Not Resolved]
